FAERS Safety Report 22266672 (Version 1)
Quarter: 2023Q2

REPORT INFORMATION
  Report Type: Spontaneous
  Country: US (occurrence: None)
  Receive Date: 20230427
  Receipt Date: 20230427
  Transmission Date: 20230722
  Serious: Yes (Hospitalization)
  Sender: FDA-Public Use
  Company Number: None

PATIENT
  Sex: Male

DRUGS (2)
  1. ADVATE [Suspect]
     Active Substance: ANTIHEMOPHILIC FACTOR, HUMAN RECOMBINANT
     Indication: Factor VIII deficiency
     Dosage: OTHER QUANTITY : 500 UNITS;?FREQUENCY : AS NEEDED;?
     Route: 042
     Dates: start: 202212
  2. ADVATE [Suspect]
     Active Substance: ANTIHEMOPHILIC FACTOR, HUMAN RECOMBINANT
     Indication: Factor VIII deficiency
     Dosage: OTHER QUANTITY : 1500 UNITS;?FREQUENCY : AS NEEDED;?
     Route: 042
     Dates: start: 202212

REACTIONS (1)
  - Haematoma [None]

NARRATIVE: CASE EVENT DATE: 20230421
